FAERS Safety Report 14392201 (Version 1)
Quarter: 2018Q1

REPORT INFORMATION
  Report Type: Spontaneous
  Country: FR (occurrence: FR)
  Receive Date: 20180116
  Receipt Date: 20180116
  Transmission Date: 20180509
  Serious: Yes (Death)
  Sender: FDA-Public Use
  Company Number: FR-PFIZER INC-2018017475

PATIENT
  Age: 42 Year
  Sex: Female

DRUGS (7)
  1. AMITRIPTYLINE [Suspect]
     Active Substance: AMITRIPTYLINE
  2. TRAMADOL. [Suspect]
     Active Substance: TRAMADOL
  3. ALCOHOL. [Suspect]
     Active Substance: ALCOHOL
  4. NORTRIPTYLINE [Suspect]
     Active Substance: NORTRIPTYLINE
  5. PREGABALIN. [Suspect]
     Active Substance: PREGABALIN
  6. PARACETAMOL [Suspect]
     Active Substance: ACETAMINOPHEN
     Dosage: UNK
  7. PARACETAMOL [Suspect]
     Active Substance: ACETAMINOPHEN
     Dosage: UNK

REACTIONS (2)
  - Overdose [Fatal]
  - Completed suicide [Fatal]
